FAERS Safety Report 6466890-6 (Version None)
Quarter: 2009Q4

REPORT INFORMATION
  Report Type: 
  Country: None (occurrence: None)
  Receive Date: 20091202
  Receipt Date: 20091117
  Transmission Date: 20100525
  Serious: No
  Sender: FDA-Public Use
  Company Number: US-B.I. PHARMACEUTICALS,INC./RIDGEFIELD-2009-BP-13317BP

PATIENT
  Sex: Male

DRUGS (5)
  1. FLOMAX [Suspect]
     Indication: BENIGN PROSTATIC HYPERPLASIA
     Dosage: 0.4 MG
     Route: 048
     Dates: start: 19970101
  2. NORVASC [Concomitant]
     Indication: BLOOD PRESSURE INCREASED
     Route: 048
  3. NADOLOL [Concomitant]
     Indication: BLOOD PRESSURE INCREASED
     Route: 048
  4. PROTONIX [Concomitant]
     Indication: OESOPHAGEAL DISORDER
     Route: 048
  5. ZETIA [Concomitant]
     Indication: BLOOD CHOLESTEROL INCREASED
     Route: 048

REACTIONS (1)
  - POLLAKIURIA [None]
